FAERS Safety Report 13702387 (Version 1)
Quarter: 2017Q2

REPORT INFORMATION
  Report Type: Report from Study
  Country: None (occurrence: US)
  Receive Date: 20170629
  Receipt Date: 20170629
  Transmission Date: 20170830
  Serious: No
  Sender: FDA-Public Use
  Company Number: US-IPSEN BIOPHARMACEUTICALS, INC.-2013-2010

PATIENT
  Age: 10 Year
  Sex: Male
  Weight: 22 kg

DRUGS (3)
  1. INCRELEX [Suspect]
     Active Substance: MECASERMIN
     Indication: INSULIN-LIKE GROWTH FACTOR DECREASED
     Route: 058
     Dates: start: 200812, end: 201304
  2. INCRELEX [Suspect]
     Active Substance: MECASERMIN
     Route: 058
     Dates: start: 201304
  3. INCRELEX [Suspect]
     Active Substance: MECASERMIN
     Route: 058

REACTIONS (3)
  - Diarrhoea [None]
  - Vomiting projectile [None]
  - Weight decreased [None]

NARRATIVE: CASE EVENT DATE: 201303
